FAERS Safety Report 9257019 (Version 2)
Quarter: 2013Q2

REPORT INFORMATION
  Report Type: Spontaneous
  Country: GB (occurrence: None)
  Receive Date: 20130424
  Receipt Date: 20130514
  Transmission Date: 20140414
  Serious: Yes (Hospitalization, Other)
  Sender: FDA-Public Use
  Company Number: AUR-APL-2013-03240

PATIENT
  Age: 74 Year
  Sex: Male

DRUGS (7)
  1. AMOXICILLIN+CLAVULANIC ACID [Suspect]
     Indication: INFECTION
     Dosage: 1875 MG (625 MG,3 IN 1 D)
  2. AMOXICILLIN+CLAVULANIC ACID [Suspect]
     Dosage: 1875 MG (625 MG,3 IN 1 D)
  3. FLUCLOXACILLIN [Suspect]
     Indication: INFECTION
     Dosage: 2000 MG (500 MG,4 IN 1 D)
     Route: 048
  4. FLUCLOXACILLIN [Suspect]
     Dosage: 2000 MG (500 MG,4 IN 1 D)
     Route: 048
  5. METRONIDAZOLE (METRONIDAZOLE) [Suspect]
     Indication: INFECTION
     Dosage: 1200 MG(400 MG,3 IN 1 D)
  6. METRONIDAZOLE (METRONIDAZOLE) [Suspect]
     Dosage: 1200 MG(400 MG,3 IN 1 D)
  7. WARFARIN (WARFARIN) [Suspect]
     Indication: DEEP VEIN THROMBOSIS

REACTIONS (14)
  - Skin necrosis [None]
  - Contusion [None]
  - Blister [None]
  - Vasculitis [None]
  - Infected skin ulcer [None]
  - Staphylococcus test positive [None]
  - Pseudomonas infection [None]
  - Cellulitis [None]
  - Thrombosis [None]
  - Angioedema [None]
  - Confusional state [None]
  - Pyrexia [None]
  - Thrombocytopenia [None]
  - Necrotising fasciitis [None]
